FAERS Safety Report 20131939 (Version 1)
Quarter: 2021Q4

REPORT INFORMATION
  Report Type: Report from Study
  Country: IT (occurrence: IT)
  Receive Date: 20211130
  Receipt Date: 20211130
  Transmission Date: 20220304
  Serious: Yes (Death)
  Sender: FDA-Public Use
  Company Number: IT-JNJFOC-20211158399

PATIENT
  Age: 72 Year

DRUGS (1)
  1. IBRUTINIB [Suspect]
     Active Substance: IBRUTINIB
     Indication: T-cell prolymphocytic leukaemia
     Route: 048
     Dates: start: 20210803

REACTIONS (1)
  - Infection [Fatal]
